FAERS Safety Report 7246285-8 (Version None)
Quarter: 2011Q1

REPORT INFORMATION
  Report Type: 
  Country: None (occurrence: None)
  Receive Date: 20110126
  Receipt Date: 20110118
  Transmission Date: 20110831
  Serious: Yes (Other)
  Sender: FDA-Public Use
  Company Number: US-JNJFOC-20110104851

PATIENT
  Sex: Female
  Weight: 66.68 kg

DRUGS (8)
  1. REMICADE [Suspect]
     Indication: PSORIASIS
     Route: 042
  2. WATER PILL NOS [Concomitant]
     Indication: FLUID RETENTION
     Route: 048
  3. GABAPENTIN [Concomitant]
     Indication: INFLAMMATION
     Route: 048
  4. LIPITOR [Concomitant]
     Indication: BLOOD CHOLESTEROL
     Route: 048
  5. REMICADE [Suspect]
     Route: 042
  6. REMICADE [Suspect]
     Route: 042
  7. REMICADE [Suspect]
     Indication: RHEUMATOID ARTHRITIS
     Route: 042
  8. COUMADIN [Concomitant]
     Indication: CARDIAC DISORDER
     Route: 048

REACTIONS (6)
  - SENSORY DISTURBANCE [None]
  - HYPOKALAEMIA [None]
  - DYSPNOEA [None]
  - CHILLS [None]
  - VOMITING [None]
  - INFUSION RELATED REACTION [None]
